FAERS Safety Report 7010045-3 (Version None)
Quarter: 2010Q3

REPORT INFORMATION
  Report Type: 
  Country: None (occurrence: None)
  Receive Date: 20100923
  Receipt Date: 20100921
  Transmission Date: 20110219
  Serious: Yes (Other)
  Sender: FDA-Public Use
  Company Number: US-GILEAD-2010-0032031

PATIENT
  Age: 74 Year
  Sex: Female

DRUGS (7)
  1. LETAIRIS [Suspect]
     Indication: PULMONARY ARTERIAL HYPERTENSION
     Route: 048
     Dates: start: 20091006, end: 20091110
  2. WARFARIN [Concomitant]
  3. FUROSEMIDE [Concomitant]
  4. SERTRALINE HYDROCHLORIDE [Concomitant]
  5. THALIDOMIDE [Concomitant]
  6. PROCRIT [Concomitant]
  7. VICODIN [Concomitant]

REACTIONS (3)
  - DYSPNOEA [None]
  - FATIGUE [None]
  - OEDEMA PERIPHERAL [None]
